FAERS Safety Report 17976209 (Version 5)
Quarter: 2020Q3

REPORT INFORMATION
  Report Type: Spontaneous
  Country: US (occurrence: US)
  Receive Date: 20200702
  Receipt Date: 20200820
  Transmission Date: 20201103
  Serious: No
  Sender: FDA-Public Use
  Company Number: US-AMGEN-USASP2020105373

PATIENT
  Age: 39 Year
  Sex: Female
  Weight: 49 kg

DRUGS (1)
  1. NEULASTA [Suspect]
     Active Substance: PEGFILGRASTIM
     Indication: NEUTROPENIA
     Dosage: 6 MILLIGRAM (ONCE)
     Route: 058

REACTIONS (4)
  - Application site bruise [Unknown]
  - Needle issue [Unknown]
  - Device physical property issue [Unknown]
  - Application site pain [Unknown]

NARRATIVE: CASE EVENT DATE: 20200611
